FAERS Safety Report 4916038-1 (Version None)
Quarter: 2006Q1

REPORT INFORMATION
  Report Type: 
  Country: None (occurrence: None)
  Receive Date: 20060214
  Receipt Date: 20060202
  Transmission Date: 20060701
  Serious: Yes (Hospitalization)
  Sender: FDA-Public Use
  Company Number: 200601654BWH

PATIENT

DRUGS (1)
  1. NEXAVIR (SORAFEBIB) [Suspect]
     Indication: RENAL CELL CARCINOMA STAGE UNSPECIFIED
     Dosage: ORAL
     Route: 048

REACTIONS (2)
  - BRAIN NATRIURETIC PEPTIDE INCREASED [None]
  - CONVULSION [None]
